FAERS Safety Report 10142415 (Version 1)
Quarter: 2014Q2

REPORT INFORMATION
  Report Type: Spontaneous
  Country: US (occurrence: US)
  Receive Date: 20140430
  Receipt Date: 20140430
  Transmission Date: 20141212
  Serious: Yes (Other)
  Sender: FDA-Public Use
  Company Number: US-ROCHE-1391849

PATIENT
  Sex: Female

DRUGS (3)
  1. HERCEPTIN [Suspect]
     Indication: BREAST CANCER METASTATIC
     Route: 065
  2. LETROZOLE [Concomitant]
     Indication: BREAST CANCER METASTATIC
  3. ZOMETA [Concomitant]
     Indication: BREAST CANCER METASTATIC

REACTIONS (1)
  - Bone cancer [Unknown]
